FAERS Safety Report 10149169 (Version 1)
Quarter: 2014Q2

REPORT INFORMATION
  Report Type: Spontaneous
  Country: GB (occurrence: GB)
  Receive Date: 20140502
  Receipt Date: 20140502
  Transmission Date: 20141212
  Serious: Yes (Other)
  Sender: FDA-Public Use
  Company Number: GB-ROCHE-1388410

PATIENT
  Age: 80 Year
  Sex: Male
  Weight: 46 kg

DRUGS (9)
  1. TAMIFLU [Suspect]
     Indication: ANTIVIRAL PROPHYLAXIS
     Route: 048
     Dates: start: 20140404, end: 20140409
  2. ADCAL-D3 [Concomitant]
  3. AMOXICILLIN [Concomitant]
  4. CO-CODAMOL [Concomitant]
  5. ENOXAPARIN SODIUM [Concomitant]
     Route: 065
     Dates: start: 20140401
  6. LACTULOSE [Concomitant]
     Route: 065
  7. LEVETIRACETAM [Concomitant]
  8. LIDOCAINE [Concomitant]
  9. MST CONTINUS [Concomitant]

REACTIONS (7)
  - Diarrhoea [Unknown]
  - Duodenal ulcer [Unknown]
  - Gastrointestinal haemorrhage [Recovering/Resolving]
  - Faeces discoloured [Unknown]
  - Tachycardia [Unknown]
  - Tachypnoea [Unknown]
  - Vomiting [Unknown]
